FAERS Safety Report 7325666-8 (Version None)
Quarter: 2011Q1

REPORT INFORMATION
  Report Type: 
  Country: None (occurrence: None)
  Receive Date: 20110302
  Receipt Date: 20110224
  Transmission Date: 20110831
  Serious: Yes (Death, Other)
  Sender: FDA-Public Use
  Company Number: GB-PFIZER INC-2010125791

PATIENT
  Age: 92 Year
  Sex: Female

DRUGS (17)
  1. LANTUS [Interacting]
     Indication: CARDIAC FAILURE
     Dosage: 40 MG, UNK
     Dates: start: 20031107
  2. LANTUS [Interacting]
     Dosage: 75 MG, UNK
  3. ACETYLSALICYLIC ACID [Concomitant]
     Indication: CARDIAC FAILURE
  4. DOXYCYCLINE MONOHYDRATE [Interacting]
     Indication: HYPERTENSION
     Dosage: 100 MG, ONE IN TOTAL
     Route: 048
     Dates: start: 20090422, end: 20090422
  5. DOXYCYCLINE MONOHYDRATE [Interacting]
     Indication: INFECTION
     Dosage: 50 MG, 1X/DAY
     Route: 048
     Dates: start: 20090423
  6. DIGOXIN [Concomitant]
     Indication: DEPRESSION
     Dosage: 20 MG, UNK
     Dates: start: 20031107
  7. SPIRONOLACTONE [Concomitant]
     Indication: CARDIAC FAILURE
     Dosage: 25 MG, UNK
     Dates: start: 20031107
  8. FUROSEMIDE [Concomitant]
     Indication: CARDIAC FAILURE
     Dosage: 40 MG, UNK
     Dates: start: 20040419
  9. FUROSEMIDE [Concomitant]
     Indication: HYPERTENSION
  10. PAROXETINE [Concomitant]
     Indication: ANXIETY
     Dosage: 25 MG, UNK
     Dates: start: 20031107
  11. SPIRONOLACTONE [Concomitant]
     Indication: HYPERTENSION
  12. DOXYCYCLINE MONOHYDRATE [Suspect]
     Indication: CARDIAC FAILURE
     Dosage: 25 MG, UNK
     Dates: start: 20031107
  13. LANTUS [Interacting]
     Dosage: 22 IU, UNK
  14. PAROXETINE [Concomitant]
     Indication: DEPRESSION
  15. LANTUS [Interacting]
     Indication: DIABETES MELLITUS
     Dosage: 125 UG, UNK
     Route: 058
     Dates: start: 20060303, end: 20090301
  16. LANTUS [Interacting]
     Indication: HYPERTENSION
     Dosage: 12 IU, UNK
     Dates: start: 20060710
  17. ACETYLSALICYLIC ACID [Concomitant]
     Indication: HYPERTENSION
     Dosage: 75 MG, UNK
     Dates: start: 20040419

REACTIONS (6)
  - ASTHENIA [None]
  - HYPERGLYCAEMIA [None]
  - DRUG INTERACTION [None]
  - HYPOGLYCAEMIA [None]
  - APHASIA [None]
  - MOBILITY DECREASED [None]
